FAERS Safety Report 6210095-0 (Version None)
Quarter: 2009Q2

REPORT INFORMATION
  Report Type: 
  Country: None (occurrence: None)
  Receive Date: 20090601
  Receipt Date: 20090521
  Transmission Date: 20091009
  Serious: Yes (Other)
  Sender: FDA-Public Use
  Company Number: IN-JNJFOC-20090506182

PATIENT
  Age: 28 Year
  Sex: Male
  Weight: 66 kg

DRUGS (3)
  1. REMICADE [Suspect]
     Indication: ANKYLOSING SPONDYLITIS
     Dosage: 1ST INFUSION
     Route: 042
  2. DULOXETINE HYDROCHLORIDE [Suspect]
     Indication: DEPRESSION
     Route: 048
  3. ETORICOXIB [Concomitant]
     Indication: ANKYLOSING SPONDYLITIS

REACTIONS (1)
  - GENERALISED OEDEMA [None]
